FAERS Safety Report 6821456-0 (Version None)
Quarter: 2010Q3

REPORT INFORMATION
  Report Type: 
  Country: None (occurrence: None)
  Receive Date: 20100707
  Receipt Date: 20081209
  Transmission Date: 20110219
  Serious: No
  Sender: FDA-Public Use
  Company Number: US-PFIZER INC-2008101405

PATIENT
  Sex: Female
  Weight: 69.545 kg

DRUGS (1)
  1. ZOLOFT [Suspect]
     Indication: DEPRESSION
     Dates: start: 20081128, end: 20081128

REACTIONS (2)
  - DIARRHOEA [None]
  - MUSCLE SPASMS [None]
